FAERS Safety Report 5813376-5 (Version None)
Quarter: 2008Q3

REPORT INFORMATION
  Report Type: 
  Country: None (occurrence: None)
  Receive Date: 20080717
  Receipt Date: 20080708
  Transmission Date: 20090109
  Serious: Yes (Hospitalization, Other)
  Sender: FDA-Public Use
  Company Number: US-ROCHE-480235

PATIENT
  Sex: Female

DRUGS (1)
  1. KLONOPIN [Suspect]
     Route: 048
     Dates: start: 20000101, end: 20040101

REACTIONS (7)
  - AMNESIA [None]
  - BIPOLAR DISORDER [None]
  - BRAIN INJURY [None]
  - CONVULSION [None]
  - PAIN [None]
  - WEIGHT DECREASED [None]
  - WITHDRAWAL SYNDROME [None]
